FAERS Safety Report 23297686 (Version 2)
Quarter: 2023Q4

REPORT INFORMATION
  Report Type: Spontaneous
  Country: US (occurrence: US)
  Receive Date: 20231214
  Receipt Date: 20231229
  Transmission Date: 20240109
  Serious: Yes (Hospitalization, Other)
  Sender: FDA-Public Use
  Company Number: US-SANOFI-01870232

PATIENT
  Age: 76 Year
  Sex: Female
  Weight: 83.5 kg

DRUGS (11)
  1. MULTAQ [Suspect]
     Active Substance: DRONEDARONE
     Indication: Atrial fibrillation
     Dosage: UNK
  2. OLMESARTAN MEDOXOMIL [Concomitant]
     Active Substance: OLMESARTAN MEDOXOMIL
     Indication: Hypertension
     Dosage: 40 MG, QD
     Route: 048
     Dates: start: 2005
  3. APIXABAN [Concomitant]
     Active Substance: APIXABAN
     Indication: Atrial fibrillation
     Dosage: 5 MG, BID
     Route: 048
     Dates: start: 20230909
  4. APIXABAN [Concomitant]
     Active Substance: APIXABAN
  5. DILTIAZEM [Concomitant]
     Active Substance: DILTIAZEM
     Indication: Atrial fibrillation
     Dosage: 120 MG, QD
     Route: 048
     Dates: start: 20230909
  6. DILTIAZEM [Concomitant]
     Active Substance: DILTIAZEM
  7. NITROGLYCERIN [Concomitant]
     Active Substance: NITROGLYCERIN
     Indication: Angina pectoris
     Dosage: 0.6 MG, PRN
     Dates: start: 20230109
  8. CLONAZEPAM [Concomitant]
     Active Substance: CLONAZEPAM
     Indication: Gadolinium deposition disease
     Dosage: 0.5 MG, BID
     Dates: start: 2005
  9. BENADRYL [Concomitant]
     Active Substance: DIPHENHYDRAMINE HYDROCHLORIDE
     Indication: Rhinitis allergic
     Dosage: 25 MG, PRN
     Route: 048
     Dates: start: 2005
  10. PANTOPRAZOLE [Concomitant]
     Active Substance: PANTOPRAZOLE
     Indication: Chronic gastritis
     Dosage: 400 MG, QD
     Route: 048
     Dates: start: 2002
  11. SUCRALFATE [Concomitant]
     Active Substance: SUCRALFATE
     Indication: Chronic gastritis
     Dosage: 1000MGPO, PRN
     Route: 048
     Dates: start: 2002

REACTIONS (9)
  - Syncope [Unknown]
  - Fall [Recovering/Resolving]
  - Rib fracture [Recovering/Resolving]
  - Tenderness [Recovering/Resolving]
  - Musculoskeletal chest pain [Unknown]
  - Dizziness [Unknown]
  - Ecchymosis [Unknown]
  - Skin abrasion [Unknown]
  - Hypotension [Unknown]

NARRATIVE: CASE EVENT DATE: 20231014
